FAERS Safety Report 8044679-4 (Version None)
Quarter: 2011Q4

REPORT INFORMATION
  Report Type: 
  Country: None (occurrence: None)
  Receive Date: 20111202
  Receipt Date: 20110411
  Transmission Date: 20120403
  Serious: Yes (Hospitalization, Other)
  Sender: FDA-Public Use
  Company Number: 2011SP016073

PATIENT
  Age: 39 Year
  Sex: Female
  Weight: 90.7194 kg

DRUGS (2)
  1. EXCEDRIN (MIGRAINE) [Concomitant]
  2. NUVARING [Suspect]
     Indication: CONTRACEPTION
     Dates: start: 20090401, end: 20090610

REACTIONS (7)
  - PULMONARY EMBOLISM [None]
  - DYSPEPSIA [None]
  - HEADACHE [None]
  - THROMBOPHLEBITIS SUPERFICIAL [None]
  - BACK PAIN [None]
  - DEEP VEIN THROMBOSIS [None]
  - DYSURIA [None]
